FAERS Safety Report 8786409 (Version 2)
Quarter: 2013Q1

REPORT INFORMATION
  Report Type: Spontaneous
  Country: US (occurrence: US)
  Receive Date: 20120914
  Receipt Date: 20130118
  Transmission Date: 20140127
  Serious: Yes (Disabling)
  Sender: FDA-Public Use
  Company Number: US-009507513-1209USA002351

PATIENT
  Sex: Male

DRUGS (10)
  1. ISENTRESS [Suspect]
     Indication: HIV INFECTION
     Dosage: 400 MG, BID
     Route: 048
     Dates: start: 20080320
  2. PREZISTA [Concomitant]
  3. INTELENCE [Concomitant]
  4. ABACAVIR SULFATE [Concomitant]
  5. NORVIR [Concomitant]
  6. VALACYCLOVIR HYDROCHLORIDE [Concomitant]
  7. LEVOCARNITINE [Concomitant]
  8. LIPITOR [Concomitant]
     Dosage: UNK
     Dates: end: 20120808
  9. VIREAD [Concomitant]
     Dosage: UNK
     Dates: end: 20120820
  10. ACTOS [Suspect]

REACTIONS (7)
  - Walking disability [Not Recovered/Not Resolved]
  - Mitochondrial toxicity [Not Recovered/Not Resolved]
  - Dysphemia [Not Recovered/Not Resolved]
  - Nervous system disorder [Not Recovered/Not Resolved]
  - Blood glucose increased [Unknown]
  - Neuropathy peripheral [Unknown]
  - Blood magnesium increased [Unknown]
